FAERS Safety Report 5420961-1 (Version None)
Quarter: 2007Q3

REPORT INFORMATION
  Report Type: 
  Country: None (occurrence: None)
  Receive Date: 20070817
  Receipt Date: 20070808
  Transmission Date: 20080115
  Serious: Yes (Death)
  Sender: FDA-Public Use
  Company Number: SP01523

PATIENT
  Age: 62 Year
  Sex: Male

DRUGS (3)
  1. XIFAXAN [Suspect]
     Indication: HEPATIC ENCEPHALOPATHY PROPHYLAXIS
     Dosage: 1200 MG (400 MG, 3 IN 1 D)
  2. CEFTRIAXONE [Suspect]
     Indication: PERITONITIS
  3. CIPROFLOXACIN [Suspect]
     Indication: PERITONITIS

REACTIONS (4)
  - ABDOMINAL PAIN [None]
  - CLOSTRIDIUM DIFFICILE COLITIS [None]
  - DIARRHOEA [None]
  - PERITONITIS [None]
